FAERS Safety Report 10080888 (Version 2)
Quarter: 2015Q2

REPORT INFORMATION
  Report Type: Spontaneous
  Country: US (occurrence: US)
  Receive Date: 20140416
  Receipt Date: 20150428
  Transmission Date: 20150821
  Serious: Yes (Hospitalization, Other)
  Sender: FDA-Public Use
  Company Number: US-BAYER-2014-055861

PATIENT
  Age: 31 Year
  Sex: Female
  Weight: 147.39 kg

DRUGS (8)
  1. YASMIN [Suspect]
     Active Substance: DROSPIRENONE\ETHINYL ESTRADIOL
     Indication: PREMENSTRUAL SYNDROME
     Dosage: UNK
     Dates: start: 2007, end: 2008
  2. NOVOLIN GE [INSULIN HUMAN] [Concomitant]
  3. NAPROSYN [Concomitant]
     Active Substance: NAPROXEN
  4. ENALAPRIL [Concomitant]
     Active Substance: ENALAPRIL
  5. FLEXERIL [Concomitant]
     Active Substance: CYCLOBENZAPRINE HYDROCHLORIDE
  6. OCELLA [Suspect]
     Active Substance: DROSPIRENONE\ETHINYL ESTRADIOL
  7. YAZ [Suspect]
     Active Substance: DROSPIRENONE\ETHINYL ESTRADIOL
     Indication: PREMENSTRUAL SYNDROME
     Dosage: UNK
     Dates: start: 2007, end: 2008
  8. LANTUS [Concomitant]
     Active Substance: INSULIN GLARGINE

REACTIONS (8)
  - Cerebrovascular accident [None]
  - Deep vein thrombosis [None]
  - Pulmonary embolism [None]
  - Off label use [None]
  - Injury [None]
  - Pain [None]
  - Thrombosis [None]
  - Emotional distress [None]

NARRATIVE: CASE EVENT DATE: 2007
